FAERS Safety Report 5731709-5 (Version None)
Quarter: 2008Q2

REPORT INFORMATION
  Report Type: 
  Country: None (occurrence: None)
  Receive Date: 20080506
  Receipt Date: 20080506
  Transmission Date: 20081010
  Serious: Yes (Other)
  Sender: FDA-Public Use
  Company Number: None

PATIENT
  Sex: Female
  Weight: 63.5036 kg

DRUGS (1)
  1. DIGITEK  .0125 MG [Suspect]
     Indication: ATRIAL FIBRILLATION
     Dosage: 1 TABLET ONCE A DAY PO
     Route: 048
     Dates: start: 20080404, end: 20080428

REACTIONS (3)
  - ARRHYTHMIA [None]
  - BRADYCARDIA [None]
  - PHARMACEUTICAL PRODUCT COMPLAINT [None]
